FAERS Safety Report 19734663 (Version 2)
Quarter: 2021Q3

REPORT INFORMATION
  Report Type: Spontaneous
  Country: RU (occurrence: RU)
  Receive Date: 20210824
  Receipt Date: 20210923
  Transmission Date: 20211014
  Serious: Yes (Life-Threatening, Hospitalization)
  Sender: FDA-Public Use
  Company Number: RU-TEVA-2021-RU-1944524

PATIENT
  Age: 28 Year
  Sex: Female
  Weight: 60 kg

DRUGS (26)
  1. CEFTRIAXONE. [Suspect]
     Active Substance: CEFTRIAXONE
     Indication: STEVENS-JOHNSON SYNDROME
     Dosage: FOR 5?7 DAYS
     Route: 042
     Dates: start: 2019
  2. SODIUM SULPHATE [Suspect]
     Active Substance: SODIUM SULFATE
     Indication: STEVENS-JOHNSON SYNDROME
     Route: 047
     Dates: start: 2019
  3. BYSTRUMGEL [Suspect]
     Active Substance: KETOPROFEN
     Indication: PRODUCT USED FOR UNKNOWN INDICATION
     Route: 065
     Dates: start: 2019
  4. PLAQUENIL [Suspect]
     Active Substance: HYDROXYCHLOROQUINE SULFATE
     Indication: ARTHRITIS REACTIVE
     Dosage: INCREASED UP TO 2 TABLETS
     Route: 065
     Dates: start: 20191109
  5. PREDNISOLONE. [Suspect]
     Active Substance: PREDNISOLONE
     Indication: ARTHRITIS REACTIVE
     Dosage: ONCE
     Route: 030
     Dates: start: 2019
  6. LEVOMEKOL [Suspect]
     Active Substance: CHLORAMPHENICOL\6-METHYLURACIL
     Indication: STEVENS-JOHNSON SYNDROME
     Route: 065
     Dates: start: 2019
  7. BLUE METHYLENE [Suspect]
     Active Substance: METHYLENE BLUE
     Indication: PRODUCT USED FOR UNKNOWN INDICATION
     Route: 065
     Dates: start: 2019
  8. AZITHROMYCIN ANHYDROUS. [Suspect]
     Active Substance: AZITHROMYCIN ANHYDROUS
     Indication: STEVENS-JOHNSON SYNDROME
     Route: 065
     Dates: start: 2019
  9. HYDROCORTISONE. [Suspect]
     Active Substance: HYDROCORTISONE
     Indication: STEVENS-JOHNSON SYNDROME
     Route: 061
     Dates: start: 2019
  10. CHLOROPYRAMINE [Suspect]
     Active Substance: CHLOROPYRAMINE
     Indication: STEVENS-JOHNSON SYNDROME
     Dosage: AT NIGHT
     Route: 030
     Dates: start: 2019
  11. AKRIDERM/GENTA [Suspect]
     Active Substance: BETAMETHASONE DIPROPIONATE\GENTAMICIN SULFATE
     Indication: LOCAL ANAESTHESIA
     Route: 061
     Dates: start: 2019
  12. MARCAINE [Suspect]
     Active Substance: BUPIVACAINE HYDROCHLORIDE
     Indication: SPINAL ANAESTHESIA
     Route: 065
     Dates: start: 2019
  13. PLAQUENIL [Suspect]
     Active Substance: HYDROXYCHLOROQUINE SULFATE
     Indication: ARTHRITIS REACTIVE
     Route: 065
     Dates: start: 2019
  14. SINAFLAN [Suspect]
     Active Substance: FLUOCINOLONE ACETONIDE
     Indication: STEVENS-JOHNSON SYNDROME
     Route: 065
     Dates: start: 2019
  15. QUAMATEL [Suspect]
     Active Substance: FAMOTIDINE
     Indication: STEVENS-JOHNSON SYNDROME
     Route: 061
     Dates: start: 2019
  16. SOLU?MEDROL [Suspect]
     Active Substance: METHYLPREDNISOLONE SODIUM SUCCINATE
     Indication: ARTHRITIS REACTIVE
     Route: 065
     Dates: start: 2019
  17. HYDROGEN PEROXIDE. [Suspect]
     Active Substance: HYDROGEN PEROXIDE
     Indication: STEVENS-JOHNSON SYNDROME
     Route: 065
     Dates: start: 2019
  18. OMEPRAZOLE. [Suspect]
     Active Substance: OMEPRAZOLE
     Indication: ARTHRITIS REACTIVE
     Route: 065
     Dates: start: 20191106
  19. SOLU?MEDROL [Suspect]
     Active Substance: METHYLPREDNISOLONE SODIUM SUCCINATE
     Indication: ARTHRITIS REACTIVE
     Route: 065
     Dates: start: 2019
  20. DEXAMETHASONE. [Suspect]
     Active Substance: DEXAMETHASONE
     Indication: STEVENS-JOHNSON SYNDROME
     Route: 042
     Dates: start: 2019
  21. ERYTHROMYCIN. [Suspect]
     Active Substance: ERYTHROMYCIN
     Indication: STEVENS-JOHNSON SYNDROME
     Route: 061
     Dates: start: 2019
  22. DERMATOL [BISMUTH SUBGALLATE] [Suspect]
     Active Substance: BISMUTH SUBGALLATE
     Indication: LOCAL ANAESTHESIA
     Route: 061
     Dates: start: 2019
  23. PREDNISOLONE. [Suspect]
     Active Substance: PREDNISOLONE
     Indication: ARTHRITIS REACTIVE
     Dosage: INCREASED UP TO 5 TABLETS A DAY
     Route: 065
     Dates: start: 2019
  24. PREDNISOLONE. [Suspect]
     Active Substance: PREDNISOLONE
     Dosage: 250 TO 500MG
     Route: 042
     Dates: start: 2019
  25. DEXAMETHASONE. [Suspect]
     Active Substance: DEXAMETHASONE
     Indication: STEVENS-JOHNSON SYNDROME
     Route: 042
     Dates: start: 2019
  26. ALBUCID [Suspect]
     Active Substance: SULFACETAMIDE SODIUM
     Indication: STEVENS-JOHNSON SYNDROME
     Route: 065
     Dates: start: 2019

REACTIONS (4)
  - Stevens-Johnson syndrome [Recovered/Resolved]
  - Live birth [Unknown]
  - Toxic epidermal necrolysis [Recovered/Resolved]
  - Maternal exposure during pregnancy [Unknown]

NARRATIVE: CASE EVENT DATE: 2019
